FAERS Safety Report 8521739-2 (Version None)
Quarter: 2012Q3

REPORT INFORMATION
  Report Type: 
  Country: None (occurrence: None)
  Receive Date: 20120719
  Receipt Date: 20120716
  Transmission Date: 20120928
  Serious: Yes (Other)
  Sender: FDA-Public Use
  Company Number: PHHY2012GB060815

PATIENT
  Age: 63 Year
  Sex: Male
  Weight: 104 kg

DRUGS (12)
  1. GABAPENTIN [Concomitant]
     Dates: start: 20120213
  2. AMOXICILLIN [Concomitant]
     Dates: start: 20120503, end: 20120510
  3. BENDROFLUMETHIAZIDE [Concomitant]
     Dates: start: 20120312
  4. PRAVASTATIN [Concomitant]
     Dosage: UNK
     Dates: start: 20120312
  5. ACETAMINOPHEN AND CODEINE PHOSPHATE [Concomitant]
     Dates: start: 20120312
  6. CITALOPRAM HYDROBROMIDE [Concomitant]
     Dates: start: 20120312, end: 20120605
  7. SILDENAFIL [Concomitant]
     Dates: start: 20120411, end: 20120704
  8. TAMSULOSIN HYDROCHLORIDE [Suspect]
     Dates: start: 20120508
  9. AMITRIPTYLINE HCL [Concomitant]
     Dates: start: 20120312
  10. AMLODIPINE [Concomitant]
     Dates: start: 20120312
  11. BETAHISTINE [Concomitant]
     Dates: start: 20120312
  12. CODEINE SULFATE [Concomitant]
     Dates: start: 20120528, end: 20120607

REACTIONS (2)
  - OEDEMA PERIPHERAL [None]
  - ERYTHEMA [None]
